FAERS Safety Report 4267237-6 (Version None)
Quarter: 2004Q1

REPORT INFORMATION
  Report Type: 
  Country: None (occurrence: None)
  Receive Date: 20040107
  Receipt Date: 20031229
  Transmission Date: 20041129
  Serious: Yes (Hospitalization, Other)
  Sender: FDA-Public Use
  Company Number: TCI2003A04674

PATIENT
  Age: 78 Year
  Sex: Male

DRUGS (2)
  1. LEUPLIN FOR INJECTION KIT3.75 (LEUPROLIDE ACETATE) (INJECTION) [Suspect]
     Indication: PROSTATE CANCER
     Dosage: 3.75 MG (3.75 MG, 1 IN 28 D) SUBCUTANEOUS
     Route: 058
     Dates: start: 20010101
  2. BICALUTAMIDE (TABLETS) [Concomitant]

REACTIONS (4)
  - HEADACHE [None]
  - HYPERHIDROSIS [None]
  - NIGHT SWEATS [None]
  - PERIPHERAL COLDNESS [None]
